FAERS Safety Report 7333084 (Version 2)
Quarter: 2013Q1

REPORT INFORMATION
  Report Type: Spontaneous
  Country: GB (occurrence: GB)
  Receive Date: 20100326
  Receipt Date: 20130305
  Transmission Date: 20140127
  Serious: Yes (Life-Threatening, Hospitalization, Other)
  Sender: FDA-Public Use
  Company Number: GB-ELI_LILLY_AND_COMPANY-GB201003004205

PATIENT
  Age: 27 Year
  Sex: Male

DRUGS (2)
  1. ZYPREXA [Suspect]
     Dosage: UNK, UNKNOWN
     Route: 065
  2. ZYPREXA [Suspect]
     Dosage: 90 D/F AT ONCE
     Route: 065

REACTIONS (8)
  - Pulmonary embolism [Recovered/Resolved]
  - Suicide attempt [Recovered/Resolved]
  - Sinus tachycardia [Recovered/Resolved]
  - Rhabdomyolysis [Recovered/Resolved]
  - Delirium [Recovered/Resolved]
  - Electrocardiogram abnormal [Recovered/Resolved]
  - Pneumonia aspiration [Recovered/Resolved]
  - Intentional overdose [Recovered/Resolved]
